FAERS Safety Report 5499133-0 (Version None)
Quarter: 2007Q4

REPORT INFORMATION
  Report Type: 
  Country: None (occurrence: None)
  Receive Date: 20071026
  Receipt Date: 20071017
  Transmission Date: 20080405
  Serious: Yes (Death, Hospitalization)
  Sender: FDA-Public Use
  Company Number: JP-AVENTIS-200712777JP

PATIENT

DRUGS (2)
  1. TAXOTERE [Suspect]
     Route: 041
  2. RADIOTHERAPY [Concomitant]

REACTIONS (2)
  - DRUG TOXICITY [None]
  - INTERSTITIAL LUNG DISEASE [None]
